FAERS Safety Report 4423516-0 (Version None)
Quarter: 2004Q3

REPORT INFORMATION
  Report Type: 
  Country: None (occurrence: None)
  Receive Date: 20040805
  Receipt Date: 20040720
  Transmission Date: 20050211
  Serious: Yes (Hospitalization)
  Sender: FDA-Public Use
  Company Number: ZA-SHR-03-018532

PATIENT
  Sex: Female

DRUGS (1)
  1. MIRENA [Suspect]
     Indication: CONTRACEPTION
     Dosage: 20 UG/DAY, CONT, INTRA-UTERINE
     Route: 015
     Dates: start: 20031013, end: 20031116

REACTIONS (4)
  - ARTHROPOD BITE [None]
  - MULTI-ORGAN FAILURE [None]
  - PYREXIA [None]
  - SEPTIC SHOCK [None]
